FAERS Safety Report 25926542 (Version 2)
Quarter: 2025Q4

REPORT INFORMATION
  Report Type: Spontaneous
  Country: EU (occurrence: EU)
  Receive Date: 20251015
  Receipt Date: 20251026
  Transmission Date: 20260117
  Serious: Yes (Other)
  Sender: ALEXION PHARMACEUTICALS
  Company Number: EU-AstraZeneca-CH-00970653A

PATIENT
  Age: 43 Year
  Sex: Male

DRUGS (9)
  1. DAPAGLIFLOZIN [Suspect]
     Active Substance: DAPAGLIFLOZIN
     Dosage: UNK
  2. TICAGRELOR [Suspect]
     Active Substance: TICAGRELOR
     Dosage: UNK
     Route: 065
  3. PANTOPRAZOLE [Concomitant]
     Active Substance: PANTOPRAZOLE
  4. METOPROLOL SUCCINATE [Concomitant]
     Active Substance: METOPROLOL SUCCINATE
  5. SPIRONOLACTONE [Concomitant]
     Active Substance: SPIRONOLACTONE
  6. EZETIMIBE [Concomitant]
     Active Substance: EZETIMIBE
  7. TICAGRELOR [Concomitant]
     Active Substance: TICAGRELOR
  8. ASPIRIN [Concomitant]
     Active Substance: ASPIRIN
  9. SACUBITRIL [Concomitant]
     Active Substance: SACUBITRIL

REACTIONS (3)
  - Cardiac failure [Unknown]
  - Fatigue [Unknown]
  - Dyspnoea exertional [Unknown]
